FAERS Safety Report 21175624 (Version 4)
Quarter: 2023Q1

REPORT INFORMATION
  Report Type: Other
  Country: US (occurrence: None)
  Receive Date: 20220805
  Receipt Date: 20230322
  Transmission Date: 20230418
  Serious: No
  Sender: FDA-Public Use
  Company Number: US-ROCHE-3152516

PATIENT
  Age: 56 Year
  Sex: Female

DRUGS (3)
  1. OCREVUS [Suspect]
     Active Substance: OCRELIZUMAB
     Indication: Relapsing-remitting multiple sclerosis
     Dosage: ON DAY 1 AND DAY 15, DATE OF TREATMENT: 26/JUL/2018, 20/JUL/2020
     Route: 042
     Dates: start: 20180712
  2. OCREVUS [Suspect]
     Active Substance: OCRELIZUMAB
     Route: 042
  3. BETASERON [Concomitant]
     Active Substance: INTERFERON BETA-1B

REACTIONS (1)
  - COVID-19 [Recovered/Resolved]
